FAERS Safety Report 8990782 (Version 1)
Quarter: 2012Q4

REPORT INFORMATION
  Report Type: 
  Country: DK (occurrence: FR)
  Receive Date: 20121228
  Receipt Date: 20121228
  Transmission Date: 20130627
  Serious: Yes (Hospitalization)
  Sender: FDA-Public Use
  Company Number: FR-FRI-1000041244

PATIENT
  Age: 91 Year
  Sex: Female

DRUGS (5)
  1. ESCITALOPRAM [Suspect]
     Dosage: 10 mg
     Route: 048
  2. PREVISCAN [Suspect]
     Indication: ATRIAL FIBRILLATION
     Dosage: 20 mg
     Route: 048
     Dates: end: 20120609
  3. CORDARONE [Suspect]
     Indication: ARRHYTHMIA
     Dosage: 200 mg
     Route: 048
  4. HYZAAR [Concomitant]
     Dosage: 50 mg/12.5 mg
     Route: 048
  5. IMOVANE [Concomitant]
     Dosage: 7.5 mg
     Route: 048

REACTIONS (1)
  - Retroperitoneal haematoma [Recovered/Resolved]
